FAERS Safety Report 6029064-9 (Version None)
Quarter: 2009Q1

REPORT INFORMATION
  Report Type: 
  Country: None (occurrence: None)
  Receive Date: 20090106
  Receipt Date: 20081229
  Transmission Date: 20090719
  Serious: Yes (Hospitalization)
  Sender: FDA-Public Use
  Company Number: AT-ELI_LILLY_AND_COMPANY-AT200812003044

PATIENT

DRUGS (3)
  1. ZYPREXA [Suspect]
     Indication: MAJOR DEPRESSION
     Dosage: 12.5 MG, DAILY (1/D)
     Route: 064
     Dates: start: 20081105, end: 20081128
  2. ZYPREXA [Suspect]
     Dosage: 60 MG, UNK
     Route: 064
     Dates: start: 20081128, end: 20080101
  3. GLADEM [Concomitant]
     Indication: DEPRESSION
     Dosage: 50 MG, DAILY (1/D)
     Route: 064
     Dates: start: 20080820

REACTIONS (2)
  - DRUG EXPOSURE DURING PREGNANCY [None]
  - SEDATION [None]
